FAERS Safety Report 13517914 (Version 1)
Quarter: 2017Q2

REPORT INFORMATION
  Report Type: Spontaneous
  Country: DE (occurrence: DE)
  Receive Date: 20170505
  Receipt Date: 20170505
  Transmission Date: 20170830
  Serious: Yes (Hospitalization)
  Sender: FDA-Public Use
  Company Number: DE-TEVA-763974GER

PATIENT
  Age: 69 Year
  Sex: Female

DRUGS (3)
  1. SIMVASTATIN-RATIOPHARM 20 MG FILMTABLETTEN [Suspect]
     Active Substance: SIMVASTATIN
     Route: 048
  2. CLEXANE [Concomitant]
     Active Substance: ENOXAPARIN SODIUM
  3. MARCUMAR [Concomitant]
     Active Substance: PHENPROCOUMON

REACTIONS (2)
  - Cutaneous calcification [Unknown]
  - Contusion [Unknown]
